FAERS Safety Report 9176088 (Version 1)
Quarter: 2013Q1

REPORT INFORMATION
  Report Type: Spontaneous
  Country: US (occurrence: US)
  Receive Date: 20130320
  Receipt Date: 20130320
  Transmission Date: 20140127
  Serious: Yes (Other)
  Sender: FDA-Public Use
  Company Number: US-RB-051233-13

PATIENT
  Age: 66 Year
  Sex: Female

DRUGS (2)
  1. MUCINEX DM MAXIMUM STRENGTH [Suspect]
     Indication: PRODUCT USED FOR UNKNOWN INDICATION
     Dosage: 1 TABLET AT NIGHT. LAST TOOK ON 07-MAR-2013
     Route: 048
  2. MUCINEX DM [Suspect]
     Indication: PRODUCT USED FOR UNKNOWN INDICATION
     Dosage: 1 OR 2  TABLETS DURING THE DAY, LAST TOOK ON 08-MAR-2013
     Route: 048

REACTIONS (4)
  - Epistaxis [Recovered/Resolved]
  - Cough [Unknown]
  - Increased upper airway secretion [Unknown]
  - Incorrect drug administration duration [Unknown]
